FAERS Safety Report 11005206 (Version 2)
Quarter: 2015Q3

REPORT INFORMATION
  Report Type: Spontaneous
  Country: CA (occurrence: CA)
  Receive Date: 20150409
  Receipt Date: 20150826
  Transmission Date: 20151125
  Serious: Yes (Other)
  Sender: FDA-Public Use
  Company Number: CA-ABBVIE-15K-028-1373069-00

PATIENT
  Age: 64 Year
  Sex: Female

DRUGS (4)
  1. ORENCIA [Suspect]
     Active Substance: ABATACEPT
     Indication: RHEUMATOID ARTHRITIS
  2. HUMIRA [Suspect]
     Active Substance: ADALIMUMAB
     Indication: RHEUMATOID ARTHRITIS
  3. ORENCIA [Suspect]
     Active Substance: ABATACEPT
     Indication: SPINAL OSTEOARTHRITIS
     Route: 042
     Dates: end: 201412
  4. HUMIRA [Suspect]
     Active Substance: ADALIMUMAB
     Indication: SPINAL OSTEOARTHRITIS
     Route: 058

REACTIONS (4)
  - Drug effect decreased [Unknown]
  - Condition aggravated [Not Recovered/Not Resolved]
  - Drug ineffective [Not Recovered/Not Resolved]
  - Rheumatoid arthritis [Not Recovered/Not Resolved]
